FAERS Safety Report 17922767 (Version 1)
Quarter: 2020Q2

REPORT INFORMATION
  Report Type: Spontaneous
  Country: US (occurrence: US)
  Receive Date: 20200621
  Receipt Date: 20200621
  Transmission Date: 20200714
  Serious: Yes (Other)
  Sender: FDA-Public Use
  Company Number: None

PATIENT
  Age: 32 Year
  Sex: Male

DRUGS (1)
  1. HALOPERIDOL (HALOPERIDOL5MG/ML INJ) [Suspect]
     Active Substance: HALOPERIDOL
     Indication: SCHIZOPHRENIA
     Dosage: ?
     Route: 030
     Dates: start: 20191104, end: 20191107

REACTIONS (2)
  - Dystonia [None]
  - Tardive dyskinesia [None]

NARRATIVE: CASE EVENT DATE: 20191106
